FAERS Safety Report 21096856 (Version 1)
Quarter: 2022Q3

REPORT INFORMATION
  Report Type: Report from Study
  Country: TW (occurrence: TW)
  Receive Date: 20220718
  Receipt Date: 20220718
  Transmission Date: 20221026
  Serious: Yes (Hospitalization)
  Sender: FDA-Public Use
  Company Number: TW-ABBVIE-22K-153-4467655-00

PATIENT
  Age: 26 Year
  Sex: Male
  Weight: 68 kg

DRUGS (2)
  1. HUMIRA [Suspect]
     Active Substance: ADALIMUMAB
     Indication: Ankylosing spondylitis
     Route: 058
     Dates: end: 20220708
  2. HUMIRA [Suspect]
     Active Substance: ADALIMUMAB
     Indication: Ankylosing spondylitis
     Route: 058
     Dates: start: 20170415

REACTIONS (6)
  - Chills [Unknown]
  - COVID-19 [Recovered/Resolved]
  - Myalgia [Unknown]
  - Headache [Unknown]
  - Oropharyngeal pain [Unknown]
  - Haematuria [Unknown]

NARRATIVE: CASE EVENT DATE: 20220623
